FAERS Safety Report 8780133 (Version 1)
Quarter: 2012Q4

REPORT INFORMATION
  Report Type: 
  Country: US (occurrence: None)
  Receive Date: 20120831
  Receipt Date: 20120831
  Transmission Date: 20130627
  Serious: No
  Sender: FDA-Public Use
  Company Number: None

PATIENT
  Sex: Male
  Weight: 75.7 kg

DRUGS (6)
  1. ALFA 2 INTERFERON 2B (INTRON-A) [Suspect]
     Dosage: IFN held week 2 days 4 and 5 and all of week 3 for grade 3 fatigue (not reportable), IFN resumed on 7/10 with 33% DR.
     Dates: start: 20120710
  2. NEXIUM [Concomitant]
  3. PHOSPHA NEUTRAL [Concomitant]
  4. PROPANOLOT [Concomitant]
  5. TRAZODONE [Concomitant]
  6. TRAZOLAM [Concomitant]

REACTIONS (1)
  - Hypophosphataemia [None]
